FAERS Safety Report 5742875-X (Version None)
Quarter: 2008Q2

REPORT INFORMATION
  Report Type: 
  Country: None (occurrence: None)
  Receive Date: 20080519
  Receipt Date: 20080514
  Transmission Date: 20081010
  Serious: Yes (Disabling)
  Sender: FDA-Public Use
  Company Number: ES-BRISTOL-MYERS SQUIBB COMPANY-14191852

PATIENT
  Age: 50 Year
  Sex: Female

DRUGS (6)
  1. IXABEPILONE [Suspect]
     Dates: start: 20080325
  2. PREDNISONE [Concomitant]
     Dosage: DOSE: LATER IT WAS 15MG/DAY.
     Dates: start: 20080311
  3. OXYCODONE HCL [Concomitant]
     Dates: start: 20080326
  4. IBUPROFEN TABLETS [Concomitant]
     Dates: start: 20080326
  5. PREGABALIN [Concomitant]
     Dates: start: 20080326
  6. THIETHYLPERAZINE [Concomitant]
     Dates: start: 20080326

REACTIONS (1)
  - PELVIC FRACTURE [None]
